FAERS Safety Report 8321812-8 (Version None)
Quarter: 2012Q2

REPORT INFORMATION
  Report Type: 
  Country: None (occurrence: None)
  Receive Date: 20120426
  Receipt Date: 20110622
  Transmission Date: 20120825
  Serious: Yes (Hospitalization, Other)
  Sender: FDA-Public Use
  Company Number: 2011AL000025

PATIENT
  Age: 79 Year
  Sex: Female

DRUGS (7)
  1. FURADANTIN [Suspect]
     Indication: URINARY TRACT INFECTION
     Dosage: PO
     Route: 048
     Dates: start: 19991201, end: 20010501
  2. NICERGOLINE HYDROCHLORIDE [Suspect]
     Indication: PRODUCT USED FOR UNKNOWN INDICATION
     Dosage: PO
     Route: 048
     Dates: start: 19991201, end: 20010501
  3. PAROXETINE HYDROCHLORIDE [Concomitant]
  4. ASPIRIN [Concomitant]
  5. XYLORIC [Concomitant]
  6. VAGOSTABYL (VAGOSTABYL) [Suspect]
     Indication: PRODUCT USED FOR UNKNOWN INDICATION
     Dosage: PO
     Route: 048
     Dates: start: 19991201, end: 20010501
  7. COLCHICINE [Suspect]
     Dosage: PO
     Route: 047
     Dates: start: 19991201, end: 20010501

REACTIONS (8)
  - BREAST CANCER [None]
  - INTERSTITIAL LUNG DISEASE [None]
  - PARKINSON'S DISEASE [None]
  - ACUTE PULMONARY OEDEMA [None]
  - LUNG DISORDER [None]
  - TUBERCULOSIS [None]
  - BRONCHIECTASIS [None]
  - PULMONARY FIBROSIS [None]
